FAERS Safety Report 11323049 (Version 1)
Quarter: 2015Q3

REPORT INFORMATION
  Report Type: Spontaneous
  Country: FR (occurrence: FR)
  Receive Date: 20150730
  Receipt Date: 20150730
  Transmission Date: 20151125
  Serious: Yes (Other)
  Sender: FDA-Public Use
  Company Number: FR-HOSPIRA-2862201

PATIENT
  Age: 63 Year
  Sex: Male

DRUGS (2)
  1. DOBUTAMINE HYDROCHLORIDE. [Suspect]
     Active Substance: DOBUTAMINE HYDROCHLORIDE
     Indication: STRESS ECHOCARDIOGRAM
     Dosage: INCREMENTAL REGIMEN OF 10, 20, 30, 40 MCG/KG/MIN, EVERY 3 MINUTES FOR EACH DOSE
     Route: 042
  2. ATROPINE. [Concomitant]
     Active Substance: ATROPINE
     Indication: PRODUCT USED FOR UNKNOWN INDICATION
     Dosage: 0.25 MG TO 1 MG, AT THE BEGINNING OF DOBUTAMINE 20, 30, 40 MCG/KG/MIN

REACTIONS (3)
  - Electrocardiogram ST segment elevation [Unknown]
  - Arteriospasm coronary [Unknown]
  - Cardiac disorder [Unknown]
